FAERS Safety Report 10627370 (Version 1)
Quarter: 2014Q4

REPORT INFORMATION
  Report Type: Spontaneous
  Country: BR (occurrence: BR)
  Receive Date: 20141204
  Receipt Date: 20141204
  Transmission Date: 20150529
  Serious: Yes (Other)
  Sender: FDA-Public Use
  Company Number: BR-ABBVIE-14K-020-1314578-00

PATIENT
  Age: 53 Year
  Sex: Female
  Weight: 85 kg

DRUGS (7)
  1. LOSARTAN [Concomitant]
     Active Substance: LOSARTAN
     Indication: BLOOD PRESSURE ABNORMAL
     Route: 048
     Dates: start: 201307
  2. RIVOTRIL [Concomitant]
     Active Substance: CLONAZEPAM
     Indication: SLEEP DISORDER
     Dosage: AT NIGHT
     Route: 048
  3. DIURIX [Concomitant]
     Indication: DIURETIC THERAPY
     Route: 048
     Dates: start: 201305
  4. VELIJA [Concomitant]
     Active Substance: DULOXETINE HYDROCHLORIDE
     Indication: DEPRESSION
     Dosage: AT NIGHT
     Route: 048
     Dates: start: 201308
  5. ALOIS [Concomitant]
     Active Substance: MEMANTINE
     Indication: MEMORY IMPAIRMENT
     Dosage: ONE TABLET 10AM OR 11AM
     Route: 048
     Dates: start: 201307
  6. HUMIRA [Suspect]
     Active Substance: ADALIMUMAB
     Indication: PSORIASIS
     Route: 058
  7. ARTROSIL [Concomitant]
     Active Substance: KETOPROFEN LYSINE
     Indication: PAIN
     Route: 048
     Dates: start: 201403

REACTIONS (11)
  - Anxiety [Not Recovered/Not Resolved]
  - Tachycardia [Unknown]
  - Blood cholesterol increased [Recovered/Resolved]
  - High density lipoprotein increased [Recovered/Resolved]
  - Paraesthesia [Unknown]
  - Burning sensation [Recovering/Resolving]
  - Blood triglycerides increased [Recovered/Resolved]
  - Arthritis [Not Recovered/Not Resolved]
  - Weight loss poor [Not Recovered/Not Resolved]
  - Emotional disorder [Unknown]
  - Muscle spasms [Recovering/Resolving]

NARRATIVE: CASE EVENT DATE: 2011
